FAERS Safety Report 23232617 (Version 1)
Quarter: 2023Q4

REPORT INFORMATION
  Report Type: Report from Study
  Country: IT (occurrence: None)
  Receive Date: 20231128
  Receipt Date: 20231128
  Transmission Date: 20240110
  Serious: Yes (Hospitalization)
  Sender: FDA-Public Use
  Company Number: IT-ROCHE-2658389

PATIENT
  Age: 74 Year
  Sex: Male
  Weight: 70 kg

DRUGS (37)
  1. GLOFITAMAB [Suspect]
     Active Substance: GLOFITAMAB
     Indication: B-cell lymphoma refractory
     Dosage: START DATE OF MOST RECENT DOSE (10 MG) PRIOR TO EVENT: 30/JUL/2020 AT 10: 15 AM?END DATE OF MOST REC
     Route: 042
     Dates: start: 20200723
  2. GLOFITAMAB [Suspect]
     Active Substance: GLOFITAMAB
     Route: 042
  3. OBINUTUZUMAB [Suspect]
     Active Substance: OBINUTUZUMAB
     Indication: B-cell lymphoma refractory
     Dosage: START DATE OF MOST RECENT DOSE PRIOR TO SAE ON 16/JUL/2020 AT 5:30 AM
     Route: 042
     Dates: start: 20200716
  4. TOCILIZUMAB [Suspect]
     Active Substance: TOCILIZUMAB
     Indication: B-cell lymphoma refractory
     Dosage: START DATE OF MOST RECENT DOSE OF TOCILIZUMAB (LOT NO : 1160663) PRIOR TO SAE: 31/JUL/2020
     Route: 042
     Dates: start: 20200723
  5. MAGNESIUM PIDOLATE [Concomitant]
     Active Substance: MAGNESIUM PIDOLATE
     Indication: Hypomagnesaemia
     Route: 048
     Dates: start: 20200729, end: 20200731
  6. ALLOPURINOL [Concomitant]
     Active Substance: ALLOPURINOL
     Dosage: GIVEN FOR PROPHYLAXIS IS YES ;
     Dates: start: 20200527, end: 20201021
  7. CALCIUM GLUCONATE [Concomitant]
     Active Substance: CALCIUM GLUCONATE
     Indication: Hypocalcaemia
     Route: 042
     Dates: start: 20200729, end: 20200731
  8. ACETAMINOPHEN [Concomitant]
     Active Substance: ACETAMINOPHEN
     Indication: Cytokine release syndrome
     Route: 042
     Dates: start: 20200723, end: 20200723
  9. ACETAMINOPHEN [Concomitant]
     Active Substance: ACETAMINOPHEN
     Dates: start: 20200723
  10. ACETAMINOPHEN [Concomitant]
     Active Substance: ACETAMINOPHEN
     Dates: start: 20200730
  11. BROMAZEPAM [Concomitant]
     Active Substance: BROMAZEPAM
     Indication: Sinus tachycardia
     Dosage: DOSE: 5 GTT
     Route: 048
     Dates: start: 20200723, end: 20200723
  12. LACTATED RINGERS SOLUTION [Concomitant]
     Active Substance: CALCIUM CHLORIDE\POTASSIUM CHLORIDE\SODIUM CHLORIDE\SODIUM LACTATE
     Indication: Acute kidney injury
     Dosage: DOSE: 250 ML/H
     Route: 042
     Dates: start: 20200724, end: 20200724
  13. POTASSIUM [Concomitant]
     Active Substance: POTASSIUM
     Indication: Hypokalaemia
     Route: 042
     Dates: start: 20200727, end: 20200727
  14. POTASSIUM [Concomitant]
     Active Substance: POTASSIUM
     Route: 048
     Dates: start: 20200728, end: 20200731
  15. METOCLOPRAMIDE HYDROCHLORIDE [Concomitant]
     Active Substance: METOCLOPRAMIDE HYDROCHLORIDE
     Indication: Nausea
     Route: 042
     Dates: start: 20200726, end: 20200804
  16. DEXAMETHASONE [Concomitant]
     Active Substance: DEXAMETHASONE
     Indication: Cytokine release syndrome
     Route: 042
     Dates: start: 20200731, end: 20200731
  17. METHYLPREDNISOLONE [Concomitant]
     Active Substance: METHYLPREDNISOLONE
     Dates: start: 20200730
  18. METHYLPREDNISOLONE [Concomitant]
     Active Substance: METHYLPREDNISOLONE
     Dates: start: 20200716
  19. METHYLPREDNISOLONE [Concomitant]
     Active Substance: METHYLPREDNISOLONE
     Dates: start: 20200723
  20. CHLORPHENIRAMINE MALEATE [Concomitant]
     Active Substance: CHLORPHENIRAMINE MALEATE
     Dates: start: 20200723
  21. CHLORPHENIRAMINE MALEATE [Concomitant]
     Active Substance: CHLORPHENIRAMINE MALEATE
     Dates: start: 20200730
  22. CHLORPHENIRAMINE MALEATE [Concomitant]
     Active Substance: CHLORPHENIRAMINE MALEATE
     Dates: start: 20200716
  23. ERYTHROPOIETIN [Concomitant]
     Active Substance: ERYTHROPOIETIN
     Indication: Anaemia
     Dates: start: 20200619
  24. ASCORBIC ACID\FERRIC PYROPHOSPHATE [Concomitant]
     Active Substance: ASCORBIC ACID\FERRIC PYROPHOSPHATE
     Indication: Anaemia
     Dates: start: 20200617
  25. PEPTAZOLE [PANTOPRAZOLE SODIUM SESQUIHYDRATE] [Concomitant]
     Indication: Gastritis prophylaxis
     Dates: start: 202002
  26. ACYCLOVIR [Concomitant]
     Active Substance: ACYCLOVIR
     Dates: start: 202002
  27. BACTRIM [Concomitant]
     Active Substance: SULFAMETHOXAZOLE\TRIMETHOPRIM
     Dates: start: 202002
  28. ASPIRIN [Concomitant]
     Active Substance: ASPIRIN
     Dates: start: 202002, end: 20200724
  29. ATORVASTATIN [Concomitant]
     Active Substance: ATORVASTATIN
     Indication: Hypercholesterolaemia
  30. RASBURICASE [Concomitant]
     Active Substance: RASBURICASE
     Dates: start: 20200722, end: 20200723
  31. ESOMEPRAZOLE [Concomitant]
     Active Substance: ESOMEPRAZOLE
     Dates: start: 20200723, end: 20200804
  32. ALBUMIN HUMAN [Concomitant]
     Active Substance: ALBUMIN HUMAN
     Indication: Hypoalbuminaemia
     Dates: start: 20200729, end: 20200804
  33. OXYGEN [Concomitant]
     Active Substance: OXYGEN
     Indication: Cytokine release syndrome
     Route: 055
     Dates: start: 20200724, end: 20200724
  34. OXYGEN [Concomitant]
     Active Substance: OXYGEN
     Indication: Acute kidney injury
     Dosage: 3 L/MIN
     Route: 045
     Dates: start: 20200731, end: 20200802
  35. OXIGENO [Concomitant]
     Indication: Acute kidney injury
     Route: 055
     Dates: start: 20200724, end: 20200727
  36. FILGRASTIM [Concomitant]
     Active Substance: FILGRASTIM
     Indication: Prophylaxis
     Dates: start: 20200807, end: 20200809
  37. FUROSEMIDE [Concomitant]
     Active Substance: FUROSEMIDE
     Indication: Oedema
     Dates: start: 20200624, end: 20200716

REACTIONS (1)
  - Gastrointestinal haemorrhage [Recovered/Resolved]

NARRATIVE: CASE EVENT DATE: 20200810
